FAERS Safety Report 21148777 (Version 1)
Quarter: 2022Q3

REPORT INFORMATION
  Report Type: Spontaneous
  Country: US (occurrence: None)
  Receive Date: 20220729
  Receipt Date: 20220729
  Transmission Date: 20221026
  Serious: Yes (Hospitalization, Other)
  Sender: FDA-Public Use
  Company Number: None

PATIENT
  Age: 70 Year
  Sex: Female

DRUGS (5)
  1. PAXLOVID [Suspect]
     Active Substance: NIRMATRELVIR\RITONAVIR
     Indication: COVID-19
     Dates: start: 20220726, end: 20220727
  2. METFORMIN [Concomitant]
     Active Substance: METFORMIN HYDROCHLORIDE
  3. LOSARTAN [Concomitant]
     Active Substance: LOSARTAN
  4. HCTZ 12.5 mg [Concomitant]
  5. SIMVASTATIN [Concomitant]
     Active Substance: SIMVASTATIN
     Dates: end: 20220725

REACTIONS (1)
  - Presyncope [None]

NARRATIVE: CASE EVENT DATE: 20220727
